FAERS Safety Report 7979451-4 (Version None)
Quarter: 2011Q4

REPORT INFORMATION
  Report Type: 
  Country: None (occurrence: None)
  Receive Date: 20111214
  Receipt Date: 20111205
  Transmission Date: 20120403
  Serious: Yes (Hospitalization)
  Sender: FDA-Public Use
  Company Number: PHEH2011US011314

PATIENT
  Sex: Male

DRUGS (2)
  1. EXJADE [Suspect]
     Indication: ANAEMIA
     Dosage: 2000 MG, QD
     Route: 048
  2. EXJADE [Suspect]
     Indication: IRON METABOLISM DISORDER

REACTIONS (4)
  - DIARRHOEA [None]
  - ABDOMINAL PAIN UPPER [None]
  - COUGH [None]
  - RETCHING [None]
